FAERS Safety Report 8630451 (Version 3)
Quarter: 2015Q4

REPORT INFORMATION
  Report Type: Spontaneous
  Country: BR (occurrence: BR)
  Receive Date: 20120622
  Receipt Date: 20151013
  Transmission Date: 20160305
  Serious: Yes (Other)
  Sender: FDA-Public Use
  Company Number: BR-ASTRAZENECA-2012SE40093

PATIENT
  Age: 24057 Day
  Sex: Male
  Weight: 105 kg

DRUGS (11)
  1. ATACAND HCT [Suspect]
     Active Substance: CANDESARTAN CILEXETIL\HYDROCHLOROTHIAZIDE
     Indication: HYPERTENSION
     Dosage: 16/12.5MG, DAILY
     Route: 048
     Dates: start: 2013
  2. RETEMIC [Concomitant]
     Active Substance: OXYBUTYNIN
     Indication: CARDIAC DISORDER
     Route: 048
  3. SOMALGIN CARDIO [Suspect]
     Active Substance: ASPIRIN\DIHYDROXYALUMINUM AMINOACETATE ANHYDROUS\MAGNESIUM CARBONATE
     Indication: HYPERTENSION
     Dosage: LEFT EYE
     Route: 048
  4. SECOTEX [Concomitant]
     Active Substance: TAMSULOSIN
     Indication: PROSTATIC DISORDER
     Route: 048
  5. AMLODIPINE [Concomitant]
     Active Substance: AMLODIPINE BESYLATE
     Indication: HYPERTENSION
     Route: 048
     Dates: start: 201411
  6. ATACAND [Suspect]
     Active Substance: CANDESARTAN CILEXETIL
     Indication: HYPERTENSION
     Route: 048
     Dates: start: 2011, end: 2013
  7. SELOZOK [Suspect]
     Active Substance: METOPROLOL SUCCINATE
     Indication: HYPERTENSION
     Route: 048
     Dates: start: 2011, end: 201406
  8. SELOZOK [Suspect]
     Active Substance: METOPROLOL SUCCINATE
     Indication: HYPERTENSION
     Route: 048
     Dates: start: 201406
  9. CRESTOR [Suspect]
     Active Substance: ROSUVASTATIN CALCIUM
     Indication: BLOOD CHOLESTEROL INCREASED
     Route: 048
  10. GLIFAGE XR [Suspect]
     Active Substance: METFORMIN HYDROCHLORIDE
     Indication: GLUCOSE TOLERANCE IMPAIRED
     Route: 048
  11. SECOTEX [Concomitant]
     Active Substance: TAMSULOSIN
     Indication: PROSTATIC DISORDER
     Dosage: DAILY
     Route: 048

REACTIONS (13)
  - Head injury [Recovered/Resolved]
  - Syncope [Recovered/Resolved]
  - Off label use [Not Recovered/Not Resolved]
  - Malaise [Recovered/Resolved]
  - Blood pressure increased [Recovering/Resolving]
  - Dizziness [Recovered/Resolved]
  - Drug ineffective [Unknown]
  - Fall [Recovered/Resolved]
  - Groin pain [Recovered/Resolved]
  - Haematoma [Recovered/Resolved]
  - Blood pressure inadequately controlled [Recovered/Resolved]
  - Speech disorder [Recovered/Resolved]
  - Palpitations [Recovered/Resolved]

NARRATIVE: CASE EVENT DATE: 20120612
